FAERS Safety Report 7015304-6 (Version None)
Quarter: 2010Q3

REPORT INFORMATION
  Report Type: 
  Country: None (occurrence: None)
  Receive Date: 20100927
  Receipt Date: 20100915
  Transmission Date: 20110219
  Serious: Yes (Hospitalization)
  Sender: FDA-Public Use
  Company Number: BR-US-EMD SERONO, INC.-7017783

PATIENT
  Sex: Male

DRUGS (4)
  1. REBIF [Suspect]
     Indication: SECONDARY PROGRESSIVE MULTIPLE SCLEROSIS
     Route: 058
     Dates: start: 20100312
  2. ACETAMINOPHEN [Concomitant]
  3. VITAMINS [Concomitant]
  4. FOOD SUPPLEMENT [Concomitant]

REACTIONS (3)
  - DECUBITUS ULCER [None]
  - OFF LABEL USE [None]
  - PYREXIA [None]
